FAERS Safety Report 13069793 (Version 1)
Quarter: 2016Q4

REPORT INFORMATION
  Report Type: Spontaneous
  Country: US (occurrence: US)
  Receive Date: 20161228
  Receipt Date: 20161228
  Transmission Date: 20170207
  Serious: No
  Sender: FDA-Public Use
  Company Number: US-BAYER-2016-238015

PATIENT
  Sex: Female

DRUGS (38)
  1. CITRUCEL [Concomitant]
     Active Substance: METHYLCELLULOSE (4000 MPA.S)
     Indication: FIBRIN DECREASED
     Dosage: 2TSP,UNK
  2. NITROQUICK [Concomitant]
     Active Substance: NITROGLYCERIN
     Indication: CHEST PAIN
     Dosage: 0.4 MG, UNK
     Route: 060
  3. REPLENS [Concomitant]
     Active Substance: CARBOMER 934\GLYCERIN\METHYLPARABEN\PROPYLPARABEN\SODIUM HYDROXIDE
     Indication: VULVOVAGINAL DRYNESS
     Dosage: UNK UNK, HS
  4. TOBRADEX [Concomitant]
     Active Substance: DEXAMETHASONE\TOBRAMYCIN
     Indication: EYE INFECTION
     Dosage: UNK, HS
  5. TYLOX [Suspect]
     Active Substance: ACETAMINOPHEN\OXYCODONE HYDROCHLORIDE
     Dosage: UNK
  6. POTACOL R [CACL DIHYDR,MALTOSE,KCL,NACL,NA+ LACT] [Concomitant]
     Indication: CARDIAC DISORDER
     Dosage: 10 MG, UNK
  7. NYSTATIN W/TRIAMCINOLONE [NYSTATIN,TRIAMCINOLONE] [Concomitant]
     Indication: VULVOVAGINAL DISCOMFORT
     Dosage: UNK UNK, PRN
  8. DOLOBID [Suspect]
     Active Substance: DIFLUNISAL
     Dosage: UNK
  9. ATORVASTATIN [Concomitant]
     Active Substance: ATORVASTATIN
     Indication: BLOOD CHOLESTEROL INCREASED
     Dosage: 20 MG, UNK
  10. DEXILANT [Concomitant]
     Active Substance: DEXLANSOPRAZOLE
     Indication: GASTROOESOPHAGEAL REFLUX DISEASE
     Dosage: 60 MG, UNK
  11. CLOTRIM ANTIFUNGAL [Concomitant]
     Indication: CYSTITIS
     Dosage: 0.05 %, PRN
     Route: 061
  12. LEVOFLOXACIN. [Concomitant]
     Active Substance: LEVOFLOXACIN
     Indication: CYSTITIS
     Dosage: 500 MG, PRN
  13. TERCONAZOLE. [Concomitant]
     Active Substance: TERCONAZOLE
     Indication: FUNGAL INFECTION
     Dosage: UNK, PRN
     Route: 061
  14. BAYER ASPIRIN [Suspect]
     Active Substance: ASPIRIN
     Indication: ANTICOAGULANT THERAPY
     Dosage: 81 MG, UNK
  15. AMIKACIN SULFATE. [Concomitant]
     Active Substance: AMIKACIN SULFATE
     Indication: NEUROPATHY PERIPHERAL
     Dosage: UNK
     Route: 061
  16. LEVOTHYROXINE. [Concomitant]
     Active Substance: LEVOTHYROXINE
     Indication: HYPERTHYROIDISM
     Dosage: 75 MG, UNK
  17. MULTIVITAMINS W/MINERALS [Concomitant]
     Active Substance: MINERALS\VITAMINS
     Dosage: UNK(WITH FOOD)
  18. VITAMIN B12 [Concomitant]
     Active Substance: CYANOCOBALAMIN
     Dosage: 2500 MG, QD
  19. CLOBETASOL PROPIONATE. [Concomitant]
     Active Substance: CLOBETASOL PROPIONATE
     Indication: VULVOVAGINAL DISCOMFORT
     Dosage: 0.05 %, PRN
  20. TYLENOL EXTRA STRENGTH [Concomitant]
     Active Substance: ACETAMINOPHEN
     Indication: PAIN
     Dosage: 500 MG, PRN
  21. FUROSEMIDE. [Concomitant]
     Active Substance: FUROSEMIDE
     Indication: CARDIAC FAILURE CONGESTIVE
     Dosage: 40 MG, UNK
  22. VALORAN [Concomitant]
     Indication: ARTHRITIS
     Dosage: UNK
  23. RELAXYL [ALVERINE CITRATE] [Concomitant]
     Indication: BONE DISORDER
     Dosage: 60 MG, UNK
  24. VITRUM CALCIUM + VIT D3 [Concomitant]
     Indication: OSTEOPOROSIS
     Dosage: 600 MG, UNK (WITH FOOD)
  25. VITAMIN C WITH ROSE HIPS [Concomitant]
     Dosage: 500 MG, UNK
  26. FLUTICASONE [Concomitant]
     Active Substance: FLUTICASONE\FLUTICASONE PROPIONATE
     Indication: HYPERSENSITIVITY
     Dosage: UNK, PRN
  27. FLUTICASONE [Concomitant]
     Active Substance: FLUTICASONE\FLUTICASONE PROPIONATE
     Indication: SINUS DISORDER
  28. MIRALAX [Suspect]
     Active Substance: POLYETHYLENE GLYCOL 3350
     Indication: GASTROINTESTINAL DISORDER
     Dosage: 2 TSP, UNK
  29. CIPRO [Suspect]
     Active Substance: CIPROFLOXACIN HYDROCHLORIDE
     Dosage: UNK
  30. CAFFEINE. [Suspect]
     Active Substance: CAFFEINE
     Dosage: UNK
  31. RANEXA [Concomitant]
     Active Substance: RANOLAZINE
     Indication: ANGINA UNSTABLE
     Dosage: 10000 MG, UNK
  32. TRIMETHOPRIM. [Concomitant]
     Active Substance: TRIMETHOPRIM
     Indication: CYSTITIS
     Dosage: 100 MG, UNK
  33. MUCINEX [Concomitant]
     Active Substance: GUAIFENESIN
     Dosage: UNK
  34. CARVEDILOL. [Concomitant]
     Active Substance: CARVEDILOL
     Indication: HYPERTENSION
     Dosage: 12.5 MG, UNK
  35. LYRICA [Concomitant]
     Active Substance: PREGABALIN
     Indication: NEUROPATHY PERIPHERAL
     Dosage: 50 MG, TID
  36. PREVIDENT [Concomitant]
     Active Substance: SODIUM FLUORIDE
     Indication: TOOTH DISORDER
     Dosage: 11 %, UNK
  37. ESTRACE [Concomitant]
     Active Substance: ESTRADIOL
     Indication: VULVOVAGINAL DISCOMFORT
     Dosage: UNK
  38. ALLEGRA [Concomitant]
     Active Substance: FEXOFENADINE HYDROCHLORIDE
     Indication: MULTIPLE ALLERGIES
     Dosage: 180 MG, UNK

REACTIONS (2)
  - Dizziness [Unknown]
  - Nausea [Unknown]
